FAERS Safety Report 7091570-6 (Version None)
Quarter: 2010Q4

REPORT INFORMATION
  Report Type: 
  Country: None (occurrence: None)
  Receive Date: 20101109
  Receipt Date: 20101029
  Transmission Date: 20110411
  Serious: Yes (Hospitalization)
  Sender: FDA-Public Use
  Company Number: PHHO2009DE04436

PATIENT
  Sex: Female
  Weight: 94 kg

DRUGS (2)
  1. ACZ885 ACZ+ [Suspect]
     Indication: RHEUMATOID ARTHRITIS
     Dosage: 300MG / 2 WEEKS
     Route: 058
     Dates: start: 20071205
  2. METHOTREXATE [Concomitant]

REACTIONS (2)
  - BLISTER [None]
  - ERYSIPELAS [None]
